FAERS Safety Report 7208046-5 (Version None)
Quarter: 2011Q1

REPORT INFORMATION
  Report Type: 
  Country: None (occurrence: None)
  Receive Date: 20110104
  Receipt Date: 20101213
  Transmission Date: 20110831
  Serious: Yes (Death, Hospitalization, Other)
  Sender: FDA-Public Use
  Company Number: FR-PFIZER INC-FR-WYE-H17587310

PATIENT
  Sex: Female

DRUGS (9)
  1. KARDEGIC [Concomitant]
     Route: 048
  2. METOPROLOL [Concomitant]
     Route: 065
  3. STILNOX [Concomitant]
     Dosage: UNK
     Route: 065
     Dates: end: 20100708
  4. TANAKAN [Concomitant]
     Route: 065
  5. COVERSYL [Concomitant]
     Route: 065
  6. PANTOPRAZOLE [Suspect]
     Dosage: 20 MG, 1X/DAY
     Route: 048
  7. VASTAREL [Concomitant]
     Route: 048
  8. ATORVASTATIN CALCIUM [Suspect]
     Dosage: 80 MG, 1X/DAY
     Route: 048
     Dates: end: 20100711
  9. PLAVIX [Suspect]
     Dosage: 75 MG, 1X/DAY
     Route: 048

REACTIONS (6)
  - DISSEMINATED INTRAVASCULAR COAGULATION [None]
  - THROMBOCYTOPENIA [None]
  - CYTOLYTIC HEPATITIS [None]
  - RHABDOMYOLYSIS [None]
  - CARDIOMYOPATHY [None]
  - MYOCARDIAL INFARCTION [None]
